FAERS Safety Report 21664565 (Version 1)
Quarter: 2022Q4

REPORT INFORMATION
  Report Type: Report from Study
  Country: IL (occurrence: IL)
  Receive Date: 20221130
  Receipt Date: 20221130
  Transmission Date: 20230113
  Serious: Yes (Disabling)
  Sender: FDA-Public Use
  Company Number: IL-JNJFOC-20221148008

PATIENT
  Age: 75 Year
  Sex: Male
  Weight: 73 kg

DRUGS (2)
  1. TECLISTAMAB [Suspect]
     Active Substance: TECLISTAMAB
     Indication: Plasma cell myeloma refractory
     Route: 058
     Dates: start: 20221111
  2. TECLISTAMAB [Suspect]
     Active Substance: TECLISTAMAB
     Dosage: 3RD DOSE
     Route: 058
     Dates: start: 20221116

REACTIONS (2)
  - Disorientation [Unknown]
  - Ataxia [Unknown]

NARRATIVE: CASE EVENT DATE: 20221118
